FAERS Safety Report 21507441 (Version 1)
Quarter: 2022Q4

REPORT INFORMATION
  Report Type: Spontaneous
  Country: US (occurrence: US)
  Receive Date: 20221026
  Receipt Date: 20221026
  Transmission Date: 20230113
  Serious: No
  Sender: FDA-Public Use
  Company Number: US-SA-SAC20221024000042

PATIENT
  Age: 57 Year

DRUGS (1)
  1. ZANTAC [Suspect]
     Active Substance: RANITIDINE HYDROCHLORIDE
     Indication: Gastritis
     Dosage: 150 MG, QD
     Dates: start: 200301, end: 202012

REACTIONS (1)
  - Breast neoplasm [Unknown]

NARRATIVE: CASE EVENT DATE: 20191201
